FAERS Safety Report 8848608 (Version 1)
Quarter: 2012Q4

REPORT INFORMATION
  Report Type: 
  Country: BR (occurrence: BR)
  Receive Date: 20121019
  Receipt Date: 20121019
  Transmission Date: 20130627
  Serious: Yes (Hospitalization, Disabling, Other)
  Sender: FDA-Public Use
  Company Number: BR-BRISTOL-MYERS SQUIBB COMPANY-17034737

PATIENT
  Sex: Male

DRUGS (1)
  1. APROZIDE [Suspect]
     Indication: HYPERTENSION
     Dosage: Form: 150/12.5mg Tabs, 1 df= 1 tab. Started 20yrs ago
     Route: 048

REACTIONS (2)
  - Xanthoma [Recovered/Resolved with Sequelae]
  - Benign prostatic hyperplasia [Unknown]
